FAERS Safety Report 15669177 (Version 1)
Quarter: 2018Q4

REPORT INFORMATION
  Report Type: Report from Study
  Country: FR (occurrence: FR)
  Receive Date: 20181129
  Receipt Date: 20181129
  Transmission Date: 20190205
  Serious: Yes (Hospitalization, Other)
  Sender: FDA-Public Use
  Company Number: FR-AMGEN-FRACT2018162595

PATIENT
  Age: 80 Year
  Sex: Male
  Weight: 63 kg

DRUGS (13)
  1. 5-FU [Suspect]
     Active Substance: FLUOROURACIL
     Indication: COLORECTAL CANCER
     Dosage: 8200 MG, UNK
     Route: 042
     Dates: start: 20171121
  2. IRINOTECAN [Suspect]
     Active Substance: IRINOTECAN
     Dosage: 260 MG, UNK
     Route: 042
     Dates: start: 20180601
  3. 5-FU [Suspect]
     Active Substance: FLUOROURACIL
     Dosage: 3850 UNK, UNK
     Route: 042
     Dates: start: 20180603
  4. OXALIPLATIN. [Suspect]
     Active Substance: OXALIPLATIN
     Dosage: 95 MG, UNK
     Route: 042
     Dates: start: 20180601
  5. PANITUMUMAB [Suspect]
     Active Substance: PANITUMUMAB
     Dosage: 420 MG, UNK
     Route: 042
     Dates: start: 20180601
  6. 5-FU [Suspect]
     Active Substance: FLUOROURACIL
     Dosage: 700 MG, UNK
     Route: 042
     Dates: start: 20180601
  7. OXALIPLATIN. [Suspect]
     Active Substance: OXALIPLATIN
     Indication: COLORECTAL CANCER
     Dosage: 1170 MG, UNK
     Route: 042
     Dates: start: 20171121
  8. CALCIUM FOLINATE [Suspect]
     Active Substance: LEUCOVORIN CALCIUM
     Dosage: 280 MG, UNK
     Route: 042
     Dates: start: 20180601
  9. IRINOTECAN [Suspect]
     Active Substance: IRINOTECAN
     Indication: COLORECTAL CANCER
     Dosage: 2860 MG, UNK
     Route: 042
     Dates: start: 20171121
  10. INNOHEP [Concomitant]
     Active Substance: TINZAPARIN SODIUM
     Indication: PULMONARY EMBOLISM
     Dosage: UNK
     Route: 058
     Dates: start: 20180404
  11. PANITUMUMAB [Suspect]
     Active Substance: PANITUMUMAB
     Indication: COLORECTAL CANCER
     Dosage: 4940 MG, UNK
     Route: 042
     Dates: start: 20171121
  12. 5-FU [Suspect]
     Active Substance: FLUOROURACIL
     Dosage: 43650 MG, UNK
     Route: 042
     Dates: start: 20171121
  13. CALCIUM FOLINATE [Suspect]
     Active Substance: LEUCOVORIN CALCIUM
     Indication: COLORECTAL CANCER
     Dosage: 3080 MG, UNK
     Route: 042
     Dates: start: 20171121

REACTIONS (1)
  - Adrenal insufficiency [Recovered/Resolved]

NARRATIVE: CASE EVENT DATE: 20180613
